FAERS Safety Report 9350247 (Version 1)
Quarter: 2013Q2

REPORT INFORMATION
  Report Type: Spontaneous
  Country: GB (occurrence: GB)
  Receive Date: 20130617
  Receipt Date: 20130617
  Transmission Date: 20140414
  Serious: Yes (Hospitalization)
  Sender: FDA-Public Use
  Company Number: GB-RANBAXY-2013R1-70070

PATIENT
  Age: 70 Year
  Sex: Male
  Weight: 66.95 kg

DRUGS (1)
  1. CO-AMOXICLAV [Suspect]
     Indication: APPENDICECTOMY
     Dosage: UNK
     Route: 065
     Dates: start: 20130327

REACTIONS (3)
  - Cholestasis [Recovering/Resolving]
  - Jaundice [Unknown]
  - Renal impairment [Recovering/Resolving]
